FAERS Safety Report 4422119-1 (Version None)
Quarter: 2004Q3

REPORT INFORMATION
  Report Type: 
  Country: None (occurrence: None)
  Receive Date: 20040806
  Receipt Date: 20040724
  Transmission Date: 20050211
  Serious: Yes (Hospitalization)
  Sender: FDA-Public Use
  Company Number: TEST00204002492

PATIENT
  Age: 16 Year
  Sex: Male
  Weight: 78.2 kg

DRUGS (1)
  1. ANDROGEL [Suspect]
     Indication: HYPOGONADISM
     Dosage: 1.5 G DAILY TD
     Route: 062
     Dates: start: 20040128, end: 20040721

REACTIONS (3)
  - ASTHENIA [None]
  - HYPOAESTHESIA [None]
  - SLIPPED FEMORAL EPIPHYSIS [None]
